FAERS Safety Report 7362611-3 (Version None)
Quarter: 2011Q1

REPORT INFORMATION
  Report Type: 
  Country: None (occurrence: None)
  Receive Date: 20110320
  Receipt Date: 20100928
  Transmission Date: 20110831
  Serious: Yes (Hospitalization)
  Sender: FDA-Public Use
  Company Number: US-BAYER-200943303NA

PATIENT
  Sex: Female
  Weight: 76.19 kg

DRUGS (5)
  1. YAZ [Suspect]
     Indication: PRODUCT USED FOR UNKNOWN INDICATION
     Dosage: UNK
     Dates: start: 20090908, end: 20091003
  2. IBUPROFEN [Concomitant]
  3. ALPRAZOLAM [Concomitant]
  4. YASMIN [Suspect]
     Indication: PRODUCT USED FOR UNKNOWN INDICATION
     Dates: start: 20090909, end: 20091004
  5. XANAX [Concomitant]

REACTIONS (5)
  - SWELLING [None]
  - CHEST PAIN [None]
  - PAIN [None]
  - HYPOAESTHESIA [None]
  - PULMONARY EMBOLISM [None]
